FAERS Safety Report 19206040 (Version 2)
Quarter: 2025Q2

REPORT INFORMATION
  Report Type: Spontaneous
  Country: ES (occurrence: ES)
  Receive Date: 20210503
  Receipt Date: 20250427
  Transmission Date: 20250716
  Serious: Yes (Other)
  Sender: AUROBINDO
  Company Number: ES-JNJFOC-20210430449

PATIENT
  Age: 6 Year
  Sex: Female
  Weight: 17 kg

DRUGS (4)
  1. BOSENTAN [Suspect]
     Active Substance: BOSENTAN
     Indication: Pulmonary artery atresia
     Route: 048
  2. SILDENAFIL [Suspect]
     Active Substance: SILDENAFIL
     Indication: Pulmonary artery atresia
     Route: 065
  3. SELEXIPAG [Concomitant]
     Active Substance: SELEXIPAG
     Indication: Product used for unknown indication
     Dosage: 200 MICROGRAM, TWO TIMES A DAY
     Route: 065
  4. SELEXIPAG [Concomitant]
     Active Substance: SELEXIPAG
     Dosage: 1600 MICROGRAM, TWO TIMES A DAY
     Route: 065

REACTIONS (4)
  - Pulmonary hypertension [Unknown]
  - Oxygen saturation decreased [Unknown]
  - Off label use [Unknown]
  - Product use in unapproved indication [Unknown]
